FAERS Safety Report 10592531 (Version 3)
Quarter: 2014Q4

REPORT INFORMATION
  Report Type: Spontaneous
  Country: US (occurrence: None)
  Receive Date: 20141117
  Receipt Date: 20141224
  Transmission Date: 20150529
  Serious: Yes (Hospitalization, Other)
  Sender: FDA-Public Use
  Company Number: ADR-2014-02111

PATIENT
  Age: 16 Year
  Sex: Male

DRUGS (3)
  1. BACLOFEN. [Suspect]
     Active Substance: BACLOFEN
     Indication: MUSCLE SPASTICITY
  2. LIORESAL [Suspect]
     Active Substance: BACLOFEN
     Indication: MUSCLE SPASTICITY
     Dosage: DAY
  3. SCOPOLAMINE [Suspect]
     Active Substance: SCOPOLAMINE
     Route: 048

REACTIONS (13)
  - Hyperhidrosis [None]
  - Device computer issue [None]
  - Device damage [None]
  - Device connection issue [None]
  - Pruritus [None]
  - Device dislocation [None]
  - Muscle twitching [None]
  - Device leakage [None]
  - Restlessness [None]
  - Drug withdrawal syndrome [None]
  - Muscle spasticity [None]
  - Drug administration error [None]
  - Underdose [None]

NARRATIVE: CASE EVENT DATE: 20141106
